FAERS Safety Report 4307619-7 (Version None)
Quarter: 2004Q1

REPORT INFORMATION
  Report Type: 
  Country: None (occurrence: None)
  Receive Date: 20040225
  Receipt Date: 20030605
  Transmission Date: 20041129
  Serious: Yes (Other)
  Sender: FDA-Public Use
  Company Number: WAES 0306USA00995

PATIENT
  Age: 77 Year
  Sex: Female
  Weight: 65.318 kg

DRUGS (1)
  1. ZOCOR [Suspect]
     Dosage: 10 MG/HS/PO
     Route: 048
     Dates: start: 19990101, end: 20030101

REACTIONS (1)
  - MYALGIA [None]
